FAERS Safety Report 6831591-9 (Version None)
Quarter: 2010Q3

REPORT INFORMATION
  Report Type: 
  Country: None (occurrence: None)
  Receive Date: 20100712
  Receipt Date: 20100630
  Transmission Date: 20110219
  Serious: Yes (Hospitalization)
  Sender: FDA-Public Use
  Company Number: PHHY2010JP42975

PATIENT
  Age: 38 Year
  Sex: Male

DRUGS (2)
  1. VOLTAREN [Suspect]
     Dosage: UNK
     Dates: start: 20100610
  2. BUPRENORPHINE HCL [Concomitant]
     Route: 054

REACTIONS (5)
  - INTESTINAL OBSTRUCTION [None]
  - INTESTINAL OPERATION [None]
  - METASTASIS [None]
  - OVERDOSE [None]
  - PROCTALGIA [None]
